FAERS Safety Report 19357830 (Version 3)
Quarter: 2021Q4

REPORT INFORMATION
  Report Type: Other
  Country: CA (occurrence: None)
  Receive Date: 20210602
  Receipt Date: 20211221
  Transmission Date: 20220303
  Serious: Yes (Other)
  Sender: FDA-Public Use
  Company Number: CA-ROCHE-2365136

PATIENT
  Age: 50 Year
  Sex: Female

DRUGS (17)
  1. RITUXAN [Suspect]
     Active Substance: RITUXIMAB
     Indication: SLE arthritis
     Dosage: PREVIOUS RITUXAN INFUSION: 20/SEP/2019
     Route: 042
     Dates: start: 20160114
  2. RITUXAN [Suspect]
     Active Substance: RITUXIMAB
     Route: 042
     Dates: start: 20190325
  3. CIPROFLOXACIN HYDROCHLORIDE [Concomitant]
     Active Substance: CIPROFLOXACIN HYDROCHLORIDE
  4. TRAMADOL [Concomitant]
     Active Substance: TRAMADOL
  5. METHYLDOPA [Concomitant]
     Active Substance: METHYLDOPA
  6. DIPHENHYDRAMINE [Concomitant]
     Active Substance: DIPHENHYDRAMINE
     Indication: Premedication
     Route: 048
     Dates: start: 20160114
  7. METHYLPREDNISOLONE [Concomitant]
     Active Substance: METHYLPREDNISOLONE
     Indication: Premedication
     Route: 042
     Dates: start: 20160114
  8. ATIVAN [Concomitant]
     Active Substance: LORAZEPAM
  9. ACETAMINOPHEN [Concomitant]
     Active Substance: ACETAMINOPHEN
     Indication: Premedication
     Route: 048
     Dates: start: 20160114
  10. SEPTRA [Concomitant]
     Active Substance: SULFAMETHOXAZOLE\TRIMETHOPRIM
     Dosage: FOR 10 DAYS
  11. METHOTREXATE [Concomitant]
     Active Substance: METHOTREXATE
  12. OXYCODONE [Concomitant]
     Active Substance: OXYCODONE
  13. MONUROL [Concomitant]
     Active Substance: FOSFOMYCIN TROMETHAMINE
  14. CIPRALEX [Concomitant]
     Active Substance: ESCITALOPRAM OXALATE
     Dosage: ONGOING
  15. TYLENOL [Concomitant]
     Active Substance: ACETAMINOPHEN
     Indication: Premedication
     Route: 048
  16. BENADRYL [Concomitant]
     Active Substance: DIPHENHYDRAMINE HYDROCHLORIDE
     Indication: Premedication
     Route: 048
  17. SOLU-MEDROL [Concomitant]
     Active Substance: METHYLPREDNISOLONE SODIUM SUCCINATE
     Indication: Premedication
     Route: 042

REACTIONS (27)
  - Kidney infection [Not Recovered/Not Resolved]
  - Ovarian vein thrombosis [Unknown]
  - Bladder mass [Unknown]
  - Suicidal ideation [Unknown]
  - Depression [Unknown]
  - Nasopharyngitis [Not Recovered/Not Resolved]
  - Sinusitis [Unknown]
  - Eye pruritus [Unknown]
  - Lacrimation increased [Unknown]
  - Urinary tract infection [Unknown]
  - Off label use [Unknown]
  - Dyshidrotic eczema [Unknown]
  - Diarrhoea [Unknown]
  - Allergy to animal [Unknown]
  - Perineal pain [Unknown]
  - Movement disorder [Unknown]
  - Pain in extremity [Unknown]
  - Arthralgia [Unknown]
  - Neck pain [Unknown]
  - Fibromyalgia [Unknown]
  - Fatigue [Unknown]
  - Abdominal pain upper [Unknown]
  - Hyperhidrosis [Unknown]
  - Bladder pain [Unknown]
  - Gastrointestinal oedema [Unknown]
  - Blood pressure diastolic abnormal [Unknown]
  - Blood pressure systolic increased [Unknown]

NARRATIVE: CASE EVENT DATE: 20180813
